FAERS Safety Report 7349810-1 (Version None)
Quarter: 2011Q1

REPORT INFORMATION
  Report Type: 
  Country: None (occurrence: None)
  Receive Date: 20110314
  Receipt Date: 20110303
  Transmission Date: 20110831
  Serious: Yes (Hospitalization, Other)
  Sender: FDA-Public Use
  Company Number: US-ROCHE-479476

PATIENT
  Sex: Male
  Weight: 56.7 kg

DRUGS (1)
  1. ACCUTANE [Suspect]
     Route: 048
     Dates: start: 19940719, end: 19950414

REACTIONS (16)
  - ASTHMA [None]
  - COLITIS ULCERATIVE [None]
  - DEPRESSION [None]
  - INFLAMMATORY BOWEL DISEASE [None]
  - COLITIS [None]
  - IRRITABLE BOWEL SYNDROME [None]
  - LIP DRY [None]
  - CROHN'S DISEASE [None]
  - MICROCYTIC ANAEMIA [None]
  - PEPTIC ULCER [None]
  - RECTAL HAEMORRHAGE [None]
  - XEROSIS [None]
  - INTESTINAL OBSTRUCTION [None]
  - ANXIETY [None]
  - ECZEMA [None]
  - GASTROENTERITIS [None]
